FAERS Safety Report 5724473-7 (Version None)
Quarter: 2008Q2

REPORT INFORMATION
  Report Type: 
  Country: None (occurrence: None)
  Receive Date: 20080429
  Receipt Date: 20080422
  Transmission Date: 20081010
  Serious: Yes (Hospitalization)
  Sender: FDA-Public Use
  Company Number: E2020-02651-SPO-FR

PATIENT
  Age: 81 Year
  Sex: Female

DRUGS (6)
  1. ARICEPT [Suspect]
     Indication: DEMENTIA ALZHEIMER'S TYPE
     Dosage: 10 MG, 1 IN 1 D, ORAL
     Route: 048
     Dates: start: 20071001, end: 20080401
  2. HALDOL [Suspect]
     Dosage: 2 MG/ML, 10 DROPS DAILY;
     Dates: end: 20080401
  3. OXAZEPAM [Suspect]
     Dosage: 22.5 MG, 1 IN 1 D, ORAL
     Route: 048
     Dates: end: 20080401
  4. NOOTROPYL (PIRACETAM) [Suspect]
     Dosage: ORAL
     Route: 048
     Dates: end: 20080401
  5. ZOPICLONE (ZOPICLONE) [Suspect]
     Dosage: ORAL
     Route: 048
     Dates: end: 20080401
  6. TAMOXIFEN CITRATE [Suspect]
     Dosage: ORAL
     Route: 048
     Dates: end: 20080401

REACTIONS (5)
  - DUODENAL ULCER [None]
  - HYPOKALAEMIA [None]
  - IMPAIRED GASTRIC EMPTYING [None]
  - SHOCK [None]
  - SUBILEUS [None]
